FAERS Safety Report 25521150 (Version 2)
Quarter: 2025Q3

REPORT INFORMATION
  Report Type: Spontaneous
  Country: US (occurrence: US)
  Receive Date: 20250705
  Receipt Date: 20250714
  Transmission Date: 20251020
  Serious: Yes (Life-Threatening, Hospitalization, Other)
  Sender: AUROBINDO
  Company Number: US-MLMSERVICE-20250616-PI546441-00225-1

PATIENT
  Age: 81 Year
  Sex: Male

DRUGS (4)
  1. MINOXIDIL [Suspect]
     Active Substance: MINOXIDIL
     Indication: Hypertension
     Route: 065
  2. FUROSEMIDE [Concomitant]
     Active Substance: FUROSEMIDE
     Indication: Pneumonia
     Route: 042
  3. AZITHROMYCIN [Concomitant]
     Active Substance: AZITHROMYCIN
     Indication: Pneumonia
     Route: 042
  4. CEFTRIAXONE [Concomitant]
     Active Substance: CEFTRIAXONE
     Indication: Pneumonia
     Route: 042

REACTIONS (5)
  - Cardiac tamponade [Recovered/Resolved]
  - Left ventricular hypertrophy [Recovered/Resolved]
  - Left atrial dilatation [Recovered/Resolved]
  - Diastolic dysfunction [Recovered/Resolved]
  - Pericardial effusion [Recovered/Resolved]
